FAERS Safety Report 9704371 (Version 1)
Quarter: 2013Q4

REPORT INFORMATION
  Report Type: Spontaneous
  Country: FR (occurrence: FR)
  Receive Date: 20131122
  Receipt Date: 20131122
  Transmission Date: 20140711
  Serious: Yes (Hospitalization)
  Sender: FDA-Public Use
  Company Number: FR-NOVOPROD-392796

PATIENT
  Age: 67 Year
  Sex: Male

DRUGS (2)
  1. NOVORAPID [Suspect]
     Indication: DIABETES MELLITUS
     Dosage: 36 IU, QD
     Route: 065
  2. LANTUS [Suspect]
     Indication: DIABETES MELLITUS
     Dosage: 60 IU, QD

REACTIONS (1)
  - Acute pulmonary oedema [Recovered/Resolved]
